FAERS Safety Report 17725664 (Version 2)
Quarter: 2020Q2

REPORT INFORMATION
  Report Type: Spontaneous
  Country: BR (occurrence: BR)
  Receive Date: 20200429
  Receipt Date: 20200513
  Transmission Date: 20200714
  Serious: Yes (Death, Hospitalization, Other)
  Sender: FDA-Public Use
  Company Number: BR-SA-2020SA009900

PATIENT
  Age: 1 Year
  Sex: Male
  Weight: 6.9 kg

DRUGS (2)
  1. MYOZYME [Suspect]
     Active Substance: ALGLUCOSIDASE ALFA
     Indication: GLYCOGEN STORAGE DISEASE TYPE II
     Dosage: 20 MG/KG, Q15D
     Route: 041
     Dates: start: 20190301
  2. MYOZYME [Suspect]
     Active Substance: ALGLUCOSIDASE ALFA
     Dosage: 20 MG/KG, Q15D
     Route: 041

REACTIONS (8)
  - Respiratory failure [Not Recovered/Not Resolved]
  - Infection [Unknown]
  - Dyspnoea [Recovering/Resolving]
  - Death [Fatal]
  - Gastrostomy [Unknown]
  - Pneumonia [Not Recovered/Not Resolved]
  - Therapeutic response decreased [Unknown]
  - Pyrexia [Unknown]

NARRATIVE: CASE EVENT DATE: 20200310
